FAERS Safety Report 21883178 (Version 3)
Quarter: 2023Q1

REPORT INFORMATION
  Report Type: Spontaneous
  Country: US (occurrence: US)
  Receive Date: 20230119
  Receipt Date: 20230310
  Transmission Date: 20230418
  Serious: Yes (Hospitalization)
  Sender: FDA-Public Use
  Company Number: US-GBT-019488

PATIENT
  Age: 43 Year
  Sex: Male

DRUGS (1)
  1. OXBRYTA [Suspect]
     Active Substance: VOXELOTOR
     Indication: Product used for unknown indication
     Route: 048

REACTIONS (7)
  - Sickle cell anaemia with crisis [Not Recovered/Not Resolved]
  - Product dose omission issue [Unknown]
  - COVID-19 [Unknown]
  - Infection [Unknown]
  - Product size issue [Unknown]
  - Choking [Unknown]
  - Product use complaint [Unknown]

NARRATIVE: CASE EVENT DATE: 20221201
